FAERS Safety Report 6144471-1 (Version None)
Quarter: 2009Q2

REPORT INFORMATION
  Report Type: 
  Country: None (occurrence: None)
  Receive Date: 20090406
  Receipt Date: 20090325
  Transmission Date: 20091009
  Serious: Yes (Death, Other)
  Sender: FDA-Public Use
  Company Number: US-PFIZER INC-2009169948

PATIENT
  Sex: Male

DRUGS (1)
  1. SUTENT [Suspect]
     Indication: RENAL CELL CARCINOMA
     Dosage: 50 MG,
     Dates: start: 20070927

REACTIONS (4)
  - DISEASE PROGRESSION [None]
  - METASTASES TO LIVER [None]
  - RENAL CANCER [None]
  - RENAL FAILURE [None]
